FAERS Safety Report 8320468-8 (Version None)
Quarter: 2012Q2

REPORT INFORMATION
  Report Type: 
  Country: None (occurrence: None)
  Receive Date: 20120430
  Receipt Date: 20120423
  Transmission Date: 20120825
  Serious: Yes (Other)
  Sender: FDA-Public Use
  Company Number: US-SANOFI-AVENTIS-2012SA022659

PATIENT
  Age: 61 Year
  Sex: Female
  Weight: 100 kg

DRUGS (6)
  1. NOVOLOG [Suspect]
     Route: 065
  2. LISINOPRIL [Concomitant]
     Indication: BLOOD PRESSURE ABNORMAL
     Dates: start: 19950101
  3. SOLOSTAR [Suspect]
     Dates: start: 20090101
  4. AMLODIPINE BESYLATE [Concomitant]
     Indication: BLOOD PRESSURE ABNORMAL
     Dates: start: 19950101
  5. LANTUS [Suspect]
     Dosage: DOSE:70 UNIT(S)
     Route: 058
     Dates: start: 20090301
  6. LASIX [Concomitant]
     Dates: start: 19950101

REACTIONS (9)
  - UPPER LIMB FRACTURE [None]
  - VISUAL ACUITY REDUCED [None]
  - TREMOR [None]
  - HYPERHIDROSIS [None]
  - PERIPHERAL VASCULAR DISORDER [None]
  - HYPOAESTHESIA [None]
  - HUNGER [None]
  - MUSCULOSKELETAL PAIN [None]
  - WEIGHT INCREASED [None]
